FAERS Safety Report 10697657 (Version 1)
Quarter: 2015Q1

REPORT INFORMATION
  Report Type: Spontaneous
  Country: FR (occurrence: None)
  Receive Date: 20150106
  Receipt Date: 20150106
  Transmission Date: 20150721
  Serious: Yes (Hospitalization)
  Sender: FDA-Public Use
  Company Number: 20142727

PATIENT
  Age: 73 Year
  Sex: Male

DRUGS (9)
  1. ENBREL [Suspect]
     Active Substance: ETANERCEPT
     Indication: RHEUMATOID ARTHRITIS
     Dates: start: 2010
  2. SPECIAFOLDINE / FOLIC ACID [Concomitant]
  3. CORTANCYL / PREDNISONE [Concomitant]
  4. ZANIDIP / LERCANIDIPINE [Concomitant]
  5. RANITIDINE / RANITIDINE [Concomitant]
  6. METOJECT [Suspect]
     Active Substance: METHOTREXATE SODIUM
     Indication: RHEUMATOID ARTHRITIS
     Dates: end: 2010
  7. BI-PROFENID / KETOPROFEN [Concomitant]
  8. APROVEL / IRBESARTAN [Concomitant]
  9. HUMIRA [Suspect]
     Active Substance: ADALIMUMAB
     Indication: RHEUMATOID ARTHRITIS
     Dosage: 1 X 40 MILLIGRAM IN 15 DAY
     Route: 058
     Dates: start: 201008, end: 20141028

REACTIONS (3)
  - Hepatic neoplasm [None]
  - Bladder cancer [None]
  - Back pain [None]

NARRATIVE: CASE EVENT DATE: 20141025
